FAERS Safety Report 10221932 (Version 1)
Quarter: 2014Q2

REPORT INFORMATION
  Report Type: Spontaneous
  Country: AR (occurrence: AR)
  Receive Date: 20140606
  Receipt Date: 20140606
  Transmission Date: 20141212
  Serious: No
  Sender: FDA-Public Use
  Company Number: AR-BIOMARINAP-AR-2013-101667

PATIENT
  Sex: Female
  Weight: 23 kg

DRUGS (1)
  1. NAGLAZYME [Suspect]
     Indication: PRODUCT USED FOR UNKNOWN INDICATION
     Dosage: 20 MG, QW
     Route: 041
     Dates: start: 20090401

REACTIONS (1)
  - Hyperthermia [Unknown]
